FAERS Safety Report 12118530 (Version 1)
Quarter: 2016Q1

REPORT INFORMATION
  Report Type: Spontaneous
  Country: US (occurrence: None)
  Receive Date: 20160224
  Receipt Date: 20160224
  Transmission Date: 20160526
  Serious: Yes (Other)
  Sender: FDA-Public Use
  Company Number: None

PATIENT
  Age: 48 Year
  Sex: Male
  Weight: 70.31 kg

DRUGS (4)
  1. FLOVENT HFA [Suspect]
     Active Substance: FLUTICASONE PROPIONATE
     Indication: ASTHMA
     Dosage: 220 MCG 4 PUFFS A DAY MOUTH
     Route: 055
  2. WARFARIN [Concomitant]
     Active Substance: WARFARIN
  3. FLOVENT HFA [Suspect]
     Active Substance: FLUTICASONE PROPIONATE
     Indication: SARCOIDOSIS
     Dosage: 220 MCG 4 PUFFS A DAY MOUTH
     Route: 055
  4. VITAMIN D3 [Concomitant]
     Active Substance: CHOLECALCIFEROL

REACTIONS (4)
  - Eye irritation [None]
  - Hypertension [None]
  - Chest pain [None]
  - Myalgia [None]

NARRATIVE: CASE EVENT DATE: 20160206
